FAERS Safety Report 8125996-6 (Version None)
Quarter: 2012Q1

REPORT INFORMATION
  Report Type: 
  Country: None (occurrence: None)
  Receive Date: 20120209
  Receipt Date: 20120131
  Transmission Date: 20120608
  Serious: Yes (Other)
  Sender: FDA-Public Use
  Company Number: US-ABBOTT-12P-163-0900721-00

PATIENT
  Age: 55 Year
  Sex: Female

DRUGS (11)
  1. DIVAN [Concomitant]
     Indication: HYPERTENSION
  2. STEROID [Concomitant]
     Indication: PRODUCT USED FOR UNKNOWN INDICATION
     Dosage: HAS MONTHLY SHOT IN THE BACK
  3. FOLIC ACID [Concomitant]
     Indication: PRODUCT USED FOR UNKNOWN INDICATION
  4. LEVOTHYROXINE SODIUM [Concomitant]
     Indication: HYPOTHYROIDISM
  5. CYMBALTA [Concomitant]
     Indication: DEPRESSION
     Dosage: DAILY DOSE: 50MG
  6. MORPHINE [Concomitant]
     Indication: BACK PAIN
     Dosage: PATCH WEEKLY
  7. PRAVASTATIN [Concomitant]
     Indication: BLOOD CHOLESTEROL INCREASED
  8. GABAPENTIN [Concomitant]
     Indication: FIBROMYALGIA
  9. METHOTREXATE [Concomitant]
     Indication: PRODUCT USED FOR UNKNOWN INDICATION
     Dosage: WEEKLY DOSE: 8 PILLS
  10. CYMBALTA [Concomitant]
     Dosage: DAILY DOSE: 100MG
  11. HUMIRA [Suspect]
     Indication: RHEUMATOID ARTHRITIS
     Dates: end: 20111201

REACTIONS (8)
  - INSOMNIA [None]
  - PAIN [None]
  - GASTROOESOPHAGEAL REFLUX DISEASE [None]
  - VISUAL ACUITY REDUCED [None]
  - MENSTRUAL DISORDER [None]
  - HERNIA [None]
  - DRUG INEFFECTIVE [None]
  - NECK PAIN [None]
